FAERS Safety Report 15300376 (Version 1)
Quarter: 2018Q3

REPORT INFORMATION
  Report Type: Spontaneous
  Country: US (occurrence: US)
  Receive Date: 20180821
  Receipt Date: 20180821
  Transmission Date: 20181010
  Serious: Yes (Death)
  Sender: FDA-Public Use
  Company Number: PHHY2018US069553

PATIENT
  Age: 65 Year
  Sex: Male

DRUGS (17)
  1. VORICONAZOLE. [Concomitant]
     Active Substance: VORICONAZOLE
     Indication: PRODUCT USED FOR UNKNOWN INDICATION
     Route: 065
  2. PHENYTOIN. [Concomitant]
     Active Substance: PHENYTOIN
     Indication: SEIZURE
  3. PHENYTOIN. [Concomitant]
     Active Substance: PHENYTOIN
     Indication: STATUS EPILEPTICUS
     Route: 065
  4. VALPROATE SODIUM. [Suspect]
     Active Substance: VALPROATE SODIUM
     Indication: STATUS EPILEPTICUS
     Route: 065
  5. MIDAZOLAM [Concomitant]
     Active Substance: MIDAZOLAM HYDROCHLORIDE
     Indication: NEUROTOXICITY
  6. PHENYTOIN. [Concomitant]
     Active Substance: PHENYTOIN
     Indication: NEUROTOXICITY
  7. LACOSAMIDE. [Concomitant]
     Active Substance: LACOSAMIDE
     Indication: STATUS EPILEPTICUS
     Route: 065
  8. PHENYTOIN. [Concomitant]
     Active Substance: PHENYTOIN
     Indication: PARTIAL SEIZURES
  9. MIDAZOLAM [Concomitant]
     Active Substance: MIDAZOLAM HYDROCHLORIDE
     Indication: STATUS EPILEPTICUS
     Route: 065
  10. PROPOFOL. [Concomitant]
     Active Substance: PROPOFOL
     Indication: SEIZURE
  11. MIDAZOLAM [Concomitant]
     Active Substance: MIDAZOLAM HYDROCHLORIDE
     Indication: SEIZURE
  12. MIDAZOLAM [Concomitant]
     Active Substance: MIDAZOLAM HYDROCHLORIDE
     Indication: PARTIAL SEIZURES
  13. PROPOFOL. [Concomitant]
     Active Substance: PROPOFOL
     Indication: STATUS EPILEPTICUS
     Route: 065
  14. TACROLIMUS. [Concomitant]
     Active Substance: TACROLIMUS
     Indication: PRODUCT USED FOR UNKNOWN INDICATION
     Route: 065
  15. PROPOFOL. [Concomitant]
     Active Substance: PROPOFOL
     Indication: PARTIAL SEIZURES
  16. PROPOFOL. [Concomitant]
     Active Substance: PROPOFOL
     Indication: NEUROTOXICITY
  17. KETAMINE [Concomitant]
     Active Substance: KETAMINE
     Indication: STATUS EPILEPTICUS
     Dosage: UNK
     Route: 065

REACTIONS (4)
  - Coma [Fatal]
  - Hyperammonaemia [Fatal]
  - Brain oedema [Fatal]
  - Seizure [Fatal]
